FAERS Safety Report 15508308 (Version 2)
Quarter: 2018Q4

REPORT INFORMATION
  Report Type: Spontaneous
  Country: FR (occurrence: FR)
  Receive Date: 20181016
  Receipt Date: 20181017
  Transmission Date: 20190205
  Serious: Yes (Hospitalization, Other)
  Sender: FDA-Public Use
  Company Number: FR-PFIZER INC-2018413498

PATIENT
  Age: 85 Year
  Sex: Male
  Weight: 78 kg

DRUGS (4)
  1. AUGMENTINE [AMOXICILLIN;CLAVULANIC ACID] [Interacting]
     Active Substance: AMOXICILLIN\CLAVULANIC ACID
     Indication: DYSURIA
     Dosage: 4 G, DAILY
     Route: 048
     Dates: start: 20180217, end: 20180224
  2. TAHOR [Suspect]
     Active Substance: ATORVASTATIN CALCIUM
     Indication: DYSLIPIDAEMIA
     Dosage: 20 MG, DAILY (EVENING)
     Route: 048
     Dates: start: 201405
  3. COUMADINE [Interacting]
     Active Substance: WARFARIN SODIUM
     Indication: ATRIAL FIBRILLATION
     Dosage: 4 MG, DAILY
     Route: 048
     Dates: start: 201709, end: 20180221
  4. CORDARONE [Interacting]
     Active Substance: AMIODARONE HYDROCHLORIDE
     Indication: ATRIAL FIBRILLATION
     Dosage: 1 DF, 1X/DAY (1/D MONDAY TO FRIDAY)
     Route: 048
     Dates: start: 201707

REACTIONS (4)
  - Haemorrhagic anaemia [Recovered/Resolved]
  - Drug interaction [Unknown]
  - International normalised ratio increased [Recovered/Resolved]
  - Rectal haemorrhage [Recovered/Resolved]

NARRATIVE: CASE EVENT DATE: 20180215
